FAERS Safety Report 5307831-4 (Version None)
Quarter: 2007Q2

REPORT INFORMATION
  Report Type: 
  Country: None (occurrence: None)
  Receive Date: 20070419
  Receipt Date: 20070410
  Transmission Date: 20071010
  Serious: Yes (Other)
  Sender: FDA-Public Use
  Company Number: 2007315077

PATIENT
  Sex: Female

DRUGS (2)
  1. NASALCROM [Suspect]
     Indication: HYPERSENSITIVITY
     Dosage: 2 SPRAYS DAILY IN EACH NOSTRIL, NASAL
     Route: 045
  2. DECONGESTIVE (GLYCEROL, KAOLIN, METHYL SALICYLATE, SALICYLIC ACID, ZIN [Suspect]
     Indication: HYPERSENSITIVITY

REACTIONS (4)
  - ASTHENIA [None]
  - BLOOD DISORDER [None]
  - BREAST CANCER [None]
  - RENAL FAILURE CHRONIC [None]
